FAERS Safety Report 10549127 (Version 2)
Quarter: 2014Q4

REPORT INFORMATION
  Report Type: Spontaneous
  Country: US (occurrence: US)
  Receive Date: 20141028
  Receipt Date: 20141028
  Transmission Date: 20150529
  Serious: Yes (Hospitalization, Other)
  Sender: FDA-Public Use
  Company Number: US-GILEAD-2014-0105431

PATIENT
  Age: 64 Year
  Sex: Female

DRUGS (2)
  1. LETAIRIS [Suspect]
     Active Substance: AMBRISENTAN
     Indication: PULMONARY ARTERIAL HYPERTENSION
  2. LETAIRIS [Suspect]
     Active Substance: AMBRISENTAN
     Indication: SICKLE CELL ANAEMIA
     Dosage: 10 MG, UNK
     Route: 065
     Dates: start: 20111222

REACTIONS (4)
  - Fluid overload [Unknown]
  - Acute respiratory failure [Unknown]
  - Renal failure [Unknown]
  - Pulmonary oedema [Unknown]
